FAERS Safety Report 9184540 (Version 1)
Quarter: 2012Q4

REPORT INFORMATION
  Report Type: 
  Country: SE (occurrence: SE)
  Receive Date: 20121101
  Receipt Date: 20121101
  Transmission Date: 20130627
  Serious: Yes (Hospitalization)
  Sender: FDA-Public Use
  Company Number: SE-PFIZER INC-2012269088

PATIENT
  Age: 32 Year
  Sex: Female
  Weight: 75 kg

DRUGS (9)
  1. GENOTROPIN [Suspect]
     Dosage: 0.3 mg, 1x/day, 7 injections/week
     Route: 058
     Dates: start: 20080509
  2. LEVOTHYROXINE [Concomitant]
     Indication: TSH DECREASED
     Dosage: UNK
     Dates: start: 20050101
  3. LEVOTHYROXINE [Concomitant]
     Indication: PRIMARY HYPOTHYROIDISM
  4. PRAVIDEL [Concomitant]
     Indication: LH DECREASED
     Dosage: UNK
     Dates: start: 20070901
  5. PRAVIDEL [Concomitant]
     Indication: FSH DECREASED
  6. PRAVIDEL [Concomitant]
     Indication: HYPOGONADISM FEMALE
  7. BROMOCRIPTINE [Concomitant]
     Indication: LH DECREASED
     Dosage: UNK
     Dates: start: 20070901
  8. BROMOCRIPTINE [Concomitant]
     Indication: FSH DECREASED
  9. BROMOCRIPTINE [Concomitant]
     Indication: HYPOGONADISM FEMALE

REACTIONS (2)
  - Sinusitis [Unknown]
  - Otitis media [Unknown]
